FAERS Safety Report 13952039 (Version 1)
Quarter: 2017Q3

REPORT INFORMATION
  Report Type: Spontaneous
  Country: AU (occurrence: AU)
  Receive Date: 20170910
  Receipt Date: 20170910
  Transmission Date: 20171128
  Serious: Yes (Disabling, Other)
  Sender: FDA-Public Use
  Company Number: AU-009507513-1709AUS001424

PATIENT
  Age: 45 Year
  Sex: Male

DRUGS (1)
  1. CELESTONE CHRONODOSE [Suspect]
     Active Substance: BETAMETHASONE ACETATE\BETAMETHASONE SODIUM PHOSPHATE
     Indication: PAIN
     Dosage: UNK
     Route: 008
     Dates: start: 2016, end: 2016

REACTIONS (3)
  - Pain [Not Recovered/Not Resolved]
  - Paraplegia [Not Recovered/Not Resolved]
  - Wheelchair user [Not Recovered/Not Resolved]

NARRATIVE: CASE EVENT DATE: 2016
